FAERS Safety Report 8215793-5 (Version None)
Quarter: 2012Q1

REPORT INFORMATION
  Report Type: 
  Country: None (occurrence: None)
  Receive Date: 20120316
  Receipt Date: 20120305
  Transmission Date: 20120608
  Serious: Yes (Hospitalization, Other)
  Sender: FDA-Public Use
  Company Number: US-ACTELION-A-US2012-61448

PATIENT

DRUGS (19)
  1. OMEPRAZOLE [Concomitant]
  2. METFORMIN HYDROCHLORIDE [Concomitant]
  3. CALCIUM CHANNEL BLOCKERS [Concomitant]
  4. EPOPROSTENOL SODIUM [Suspect]
     Indication: PULMONARY ARTERIAL HYPERTENSION
     Dosage: 21 NG/KG, PER MIN
     Route: 042
     Dates: start: 20110608
  5. CARDIZEM [Concomitant]
  6. FUROSEMIDE [Concomitant]
  7. GABAPENTIN [Concomitant]
  8. FINASTERID [Concomitant]
  9. VITAMIN B-12 [Concomitant]
  10. ALLOPURINOL [Concomitant]
  11. MYCOPHENOLATE MOFETIL [Concomitant]
  12. TRACLEER [Suspect]
     Indication: PULMONARY ARTERIAL HYPERTENSION
     Dosage: UNK
     Route: 048
     Dates: start: 20090924
  13. AMITRIPTYLINE HCL [Concomitant]
  14. EPOPROSTENOL SODIUM [Suspect]
     Dosage: 19 NG/KG, PER MIN
     Route: 042
     Dates: start: 20120216
  15. FERROUS SULFATE TAB [Concomitant]
  16. ATORVASTATIN [Concomitant]
  17. SILDENAFIL [Concomitant]
  18. AMLODIPINE [Concomitant]
  19. OXYGEN [Concomitant]

REACTIONS (11)
  - WALKING DISTANCE TEST ABNORMAL [None]
  - RENAL FAILURE [None]
  - BALLOON ATRIAL SEPTOSTOMY [None]
  - ASCITES [None]
  - COR PULMONALE [None]
  - DYSPNOEA [None]
  - PARACENTESIS [None]
  - PULMONARY ARTERIAL HYPERTENSION [None]
  - CONDITION AGGRAVATED [None]
  - MELAENA [None]
  - HAEMATEMESIS [None]
